APPROVED DRUG PRODUCT: PRAZEPAM
Active Ingredient: PRAZEPAM
Strength: 5MG
Dosage Form/Route: CAPSULE;ORAL
Application: A070427 | Product #001
Applicant: USL PHARMA INC
Approved: Nov 6, 1987 | RLD: No | RS: No | Type: DISCN